FAERS Safety Report 4526403-2 (Version None)
Quarter: 2004Q4

REPORT INFORMATION
  Report Type: 
  Country: None (occurrence: None)
  Receive Date: 20041213
  Receipt Date: 20041208
  Transmission Date: 20050328
  Serious: Yes (Disabling)
  Sender: FDA-Public Use
  Company Number: 2004-UK-01321UK

PATIENT
  Age: 69 Year
  Sex: Female

DRUGS (6)
  1. MICARDIS (PROFESS STUDY 00015/0205/1) (TELMISARTAN) (TA) (TELMISARTAN) [Suspect]
     Indication: CEREBROVASCULAR ACCIDENT PROPHYLAXIS
     Dosage: 40 MG
     Route: 048
     Dates: start: 20041120, end: 20041202
  2. CLOPIDOGREL (AGGRENOX REFERENCE) (TA) [Concomitant]
     Indication: CEREBROVASCULAR ACCIDENT PROPHYLAXIS
     Dosage: 75 MG
     Dates: start: 20041120
  3. PLACEBO (PLACEBO) [Suspect]
     Dosage: 200/25 MG
     Route: 048
     Dates: start: 20041120
  4. ACCUPRIL [Suspect]
     Dosage: 10 MG (NR)
     Route: 048
     Dates: start: 20010101, end: 20031202
  5. METOPROLOL (METOPROLOL) (TA) [Concomitant]
  6. HCTZ/TRIAMTERONE (TA) [Concomitant]

REACTIONS (1)
  - RENAL FAILURE [None]
